FAERS Safety Report 8150986-7 (Version None)
Quarter: 2012Q1

REPORT INFORMATION
  Report Type: 
  Country: None (occurrence: None)
  Receive Date: 20120220
  Receipt Date: 20120209
  Transmission Date: 20120608
  Serious: Yes (Hospitalization)
  Sender: FDA-Public Use
  Company Number: BR-BRISTOL-MYERS SQUIBB COMPANY-16394793

PATIENT
  Age: 43 Year
  Sex: Female

DRUGS (2)
  1. IPILIMUMAB [Suspect]
     Indication: MALIGNANT MELANOMA
     Dosage: NO OF COURSES: 03.
     Route: 042
     Dates: start: 20111208
  2. CEFEPIME [Concomitant]
     Dates: start: 20120208

REACTIONS (2)
  - URINARY TRACT INFECTION [None]
  - SEPSIS [None]
